FAERS Safety Report 13114594 (Version 1)
Quarter: 2017Q1

REPORT INFORMATION
  Report Type: Spontaneous
  Country: US (occurrence: US)
  Receive Date: 20170113
  Receipt Date: 20170113
  Transmission Date: 20170428
  Serious: Yes (Other)
  Sender: FDA-Public Use
  Company Number: US-ASTRAZENECA-2017SE02553

PATIENT
  Age: 87 Year
  Sex: Female
  Weight: 54.4 kg

DRUGS (13)
  1. FLOVENT [Concomitant]
     Active Substance: FLUTICASONE PROPIONATE
     Route: 065
  2. PURITANS PRIDE BETANINE HYDROCLORIDE [Suspect]
     Active Substance: BETAINE HYDROCHLORIDE
     Indication: SUPPLEMENTATION THERAPY
     Route: 065
     Dates: start: 201501, end: 2016
  3. PURITANS PRIDE RED YEAST RICE [Suspect]
     Active Substance: RED YEAST
     Indication: SUPPLEMENTATION THERAPY
     Route: 065
     Dates: start: 201603, end: 201610
  4. LOVASTATIN. [Concomitant]
     Active Substance: LOVASTATIN
     Dosage: ONE PILL ONCE PER DAY
     Route: 065
  5. CLONIDINE. [Concomitant]
     Active Substance: CLONIDINE
     Route: 065
  6. PURITANS PRIDE PSYLLIUM HUSKS [Suspect]
     Active Substance: PSYLLIUM HUSK
     Indication: SUPPLEMENTATION THERAPY
     Route: 065
     Dates: start: 201511, end: 201610
  7. PURITANS PRIDE GINGER ROOT [Suspect]
     Active Substance: GINGER
     Indication: SUPPLEMENTATION THERAPY
     Route: 065
     Dates: start: 201603, end: 201610
  8. HYDROCHLOROTHIAZIDE. [Concomitant]
     Active Substance: HYDROCHLOROTHIAZIDE
  9. PURITANS PRIDE NIACIN [Suspect]
     Active Substance: NIACIN
     Indication: SUPPLEMENTATION THERAPY
     Route: 065
     Dates: start: 201603, end: 201610
  10. TOPROL XL [Suspect]
     Active Substance: METOPROLOL SUCCINATE
     Indication: HYPERTENSION
     Route: 048
     Dates: start: 2016
  11. PURITANS PRIDE ALEO VERA [Suspect]
     Active Substance: ALOE
     Indication: SUPPLEMENTATION THERAPY
     Route: 065
     Dates: start: 201512, end: 201612
  12. NORVASC [Suspect]
     Active Substance: AMLODIPINE BESYLATE
     Route: 065
  13. PURITANS PRIDE YEAST FREE CHROMIUM PICOINATE [Suspect]
     Active Substance: CHROMIUM PICOLINATE
     Indication: SUPPLEMENTATION THERAPY
     Route: 065
     Dates: start: 201603, end: 201610

REACTIONS (6)
  - Blood pressure increased [Unknown]
  - Product use issue [Unknown]
  - Peripheral swelling [Unknown]
  - Off label use [Unknown]
  - Loss of consciousness [Unknown]
  - Malaise [Unknown]

NARRATIVE: CASE EVENT DATE: 2016
